FAERS Safety Report 6526966-1 (Version None)
Quarter: 2009Q4

REPORT INFORMATION
  Report Type: 
  Country: None (occurrence: None)
  Receive Date: 20091229
  Receipt Date: 20091221
  Transmission Date: 20100525
  Serious: Yes (Death)
  Sender: FDA-Public Use
  Company Number: 2009SP043221

PATIENT
  Age: 73 Year
  Sex: Female

DRUGS (6)
  1. MIRTAZAPINE [Suspect]
     Indication: DEPRESSION
     Dosage: 7.5 MG; QD; PO
     Route: 048
     Dates: start: 20091214, end: 20091216
  2. FLUVOXAMINE MALEATE [Suspect]
     Indication: DRUG USE FOR UNKNOWN INDICATION
     Dosage: 100 MG; QD; PO
     Route: 048
     Dates: end: 20091216
  3. AKINETON [Suspect]
     Indication: DRUG USE FOR UNKNOWN INDICATION
     Dosage: 2 MG; QD; PO
     Route: 048
     Dates: end: 20091216
  4. SILECE (FLUNITRAZEPAM) [Suspect]
     Indication: DRUG USE FOR UNKNOWN INDICATION
     Dosage: 2 MG; QD; PO
     Route: 048
     Dates: end: 20091216
  5. PROMETHAZINE HCL [Suspect]
     Indication: DRUG USE FOR UNKNOWN INDICATION
     Dosage: 10 MG; QD; PO
     Route: 048
     Dates: end: 20091216
  6. AMOBAN (ZOPICLONE) [Suspect]
     Indication: DRUG USE FOR UNKNOWN INDICATION
     Dosage: 7.5 MG; PO
     Route: 048
     Dates: end: 20091216

REACTIONS (8)
  - ABDOMINAL INJURY [None]
  - ALCOHOL ABUSE [None]
  - BREAST CANCER [None]
  - COMPLETED SUICIDE [None]
  - DEPRESSION [None]
  - FATIGUE [None]
  - GLAUCOMA [None]
  - OVERDOSE [None]
